FAERS Safety Report 7032520-8 (Version None)
Quarter: 2010Q4

REPORT INFORMATION
  Report Type: 
  Country: None (occurrence: None)
  Receive Date: 20101004
  Receipt Date: 20100928
  Transmission Date: 20110411
  Serious: Yes (Life-Threatening, Hospitalization, Other)
  Sender: FDA-Public Use
  Company Number: WAES 1007USA04124

PATIENT
  Age: 65 Year
  Sex: Male

DRUGS (18)
  1. DECADRON [Suspect]
     Indication: PRODUCT USED FOR UNKNOWN INDICATION
     Dosage: 20MG/DAILY, PO
     Route: 048
     Dates: start: 20100618
  2. CAP VORINOSTAT [Suspect]
     Indication: MULTIPLE MYELOMA
     Dosage: 400 MG/DAILY, PO
     Route: 048
     Dates: start: 20090807, end: 20100730
  3. CAP VORINOSTAT [Suspect]
     Indication: MULTIPLE MYELOMA
     Dosage: 400 MG/DAILY, PO
     Route: 048
     Dates: start: 20100806
  4. VELCADE [Suspect]
     Indication: MULTIPLE MYELOMA
     Dosage: 1.25 MG/DAILY, IV; 1.25 MG/DAILY, IV
     Route: 042
     Dates: start: 20090807, end: 20100730
  5. VELCADE [Suspect]
     Indication: MULTIPLE MYELOMA
     Dosage: 1.25 MG/DAILY, IV; 1.25 MG/DAILY, IV
     Route: 042
     Dates: start: 20100806
  6. ENDEP [Concomitant]
  7. ENDONE [Concomitant]
  8. LOPERAMIDE [Concomitant]
  9. NULYTELY [Concomitant]
  10. OCTAGAM [Concomitant]
  11. ACETAMINOPHEN W/ CODEINE [Concomitant]
  12. PROHIBITOR [Concomitant]
  13. ASPIRIN [Concomitant]
  14. BLOOD CELLS, RED [Concomitant]
  15. ONDANSETRON HYDROCHLORIDE [Concomitant]
  16. PLATELETS [Concomitant]
  17. SIMVASTATIN [Concomitant]
  18. TEMAZEPAM [Concomitant]

REACTIONS (9)
  - CHEST PAIN [None]
  - CORONARY ARTERY DISEASE [None]
  - DRUG TOXICITY [None]
  - HAEMATOCRIT DECREASED [None]
  - HAEMOGLOBIN DECREASED [None]
  - MEAN CELL VOLUME INCREASED [None]
  - MYOCARDIAL ISCHAEMIA [None]
  - RED BLOOD CELL COUNT DECREASED [None]
  - SEPSIS [None]
